FAERS Safety Report 13258204 (Version 1)
Quarter: 2017Q1

REPORT INFORMATION
  Report Type: Spontaneous
  Country: US (occurrence: US)
  Receive Date: 20170221
  Receipt Date: 20170221
  Transmission Date: 20170428
  Serious: No
  Sender: FDA-Public Use
  Company Number: US-GILEAD-2017-0258195

PATIENT
  Age: 74 Year

DRUGS (1)
  1. HARVONI [Suspect]
     Active Substance: LEDIPASVIR\SOFOSBUVIR
     Indication: PRODUCT USED FOR UNKNOWN INDICATION
     Dosage: UNK
     Route: 065
     Dates: start: 20170116

REACTIONS (4)
  - Fatigue [Recovered/Resolved]
  - Wrong technique in product usage process [Unknown]
  - Herpes virus infection [Recovered/Resolved]
  - Dizziness [Recovered/Resolved]
